FAERS Safety Report 12177669 (Version 3)
Quarter: 2016Q2

REPORT INFORMATION
  Report Type: Spontaneous
  Country: US (occurrence: US)
  Receive Date: 20160315
  Receipt Date: 20160406
  Transmission Date: 20160815
  Serious: Yes (Death, Hospitalization)
  Sender: FDA-Public Use
  Company Number: US-HORIZON-RAV-0048-2016

PATIENT
  Age: 83 Year
  Sex: Female

DRUGS (1)
  1. RAVICTI [Suspect]
     Active Substance: GLYCEROL PHENYLBUTYRATE
     Indication: ORNITHINE TRANSCARBAMOYLASE DEFICIENCY
     Dosage: 3.5 ML THREE TIMES DAILY
     Dates: start: 201501, end: 201602

REACTIONS (11)
  - Memory impairment [Recovering/Resolving]
  - Depressed mood [Recovering/Resolving]
  - Pneumonia [Recovering/Resolving]
  - Asthenia [Recovering/Resolving]
  - Atrial fibrillation [Recovering/Resolving]
  - Respiratory failure [Fatal]
  - Headache [Recovering/Resolving]
  - Confusional state [Recovering/Resolving]
  - Fatigue [Recovering/Resolving]
  - Weight decreased [Recovering/Resolving]
  - Muscular weakness [Recovering/Resolving]

NARRATIVE: CASE EVENT DATE: 201512
